FAERS Safety Report 18445297 (Version 1)
Quarter: 2020Q4

REPORT INFORMATION
  Report Type: Spontaneous
  Country: US (occurrence: US)
  Receive Date: 20201030
  Receipt Date: 20201030
  Transmission Date: 20210114
  Serious: No
  Sender: FDA-Public Use
  Company Number: US-SUNOVION-2020SUN003085

PATIENT
  Sex: Female

DRUGS (4)
  1. BUPROPION. [Concomitant]
     Active Substance: BUPROPION
     Indication: DEPRESSION
  2. LUNESTA [Suspect]
     Active Substance: ESZOPICLONE
     Dosage: UNK
     Route: 048
  3. BUPROPION. [Concomitant]
     Active Substance: BUPROPION
     Indication: ANXIETY
  4. ALPRAZOLAM. [Suspect]
     Active Substance: ALPRAZOLAM
     Dosage: 0.5 MG

REACTIONS (1)
  - Memory impairment [Unknown]
